FAERS Safety Report 16108857 (Version 3)
Quarter: 2019Q2

REPORT INFORMATION
  Report Type: Spontaneous
  Country: DE (occurrence: DE)
  Receive Date: 20190323
  Receipt Date: 20190409
  Transmission Date: 20190711
  Serious: Yes (Hospitalization, Other)
  Sender: FDA-Public Use
  Company Number: DE-DRREDDYS-USA/GER/19/0108824

PATIENT
  Age: 67 Year
  Sex: Male

DRUGS (6)
  1. IBUPROFEN. [Suspect]
     Active Substance: IBUPROFEN
     Indication: NASOPHARYNGITIS
     Route: 065
  2. QUILONUM [Suspect]
     Active Substance: LITHIUM
     Indication: BIPOLAR DISORDER
     Route: 065
     Dates: start: 2005
  3. HYPNOREX [Suspect]
     Active Substance: LITHIUM CARBONATE
     Dates: start: 2001
  4. HYPNOREX [Suspect]
     Active Substance: LITHIUM CARBONATE
     Dates: start: 1998
  5. LISINOPRIL. [Suspect]
     Active Substance: LISINOPRIL
     Indication: HYPERTENSION
     Route: 065
     Dates: start: 2001
  6. HYPNOREX [Suspect]
     Active Substance: LITHIUM CARBONATE
     Indication: BIPOLAR DISORDER
     Dates: start: 2000

REACTIONS (11)
  - Dysphagia [Recovering/Resolving]
  - Self-medication [Unknown]
  - Ataxia [Recovering/Resolving]
  - Delirium [Recovering/Resolving]
  - Apraxia [Recovering/Resolving]
  - Toxicity to various agents [Recovering/Resolving]
  - Disorientation [Recovering/Resolving]
  - Aphasia [Recovering/Resolving]
  - Hypomania [Unknown]
  - Tremor [Recovering/Resolving]
  - Agitation [Recovering/Resolving]
